FAERS Safety Report 12188687 (Version 1)
Quarter: 2016Q1

REPORT INFORMATION
  Report Type: Spontaneous
  Country: US (occurrence: US)
  Receive Date: 20160317
  Receipt Date: 20160317
  Transmission Date: 20160526
  Serious: Yes (Other)
  Sender: FDA-Public Use
  Company Number: US-ACTAVIS-2016-05800

PATIENT
  Age: 34 Year
  Sex: Male

DRUGS (3)
  1. OXCARBAZEPINE. [Suspect]
     Active Substance: OXCARBAZEPINE
     Indication: PSYCHOTIC DISORDER
     Dosage: 300 MG, BID
     Route: 065
  2. QUETIAPINE (AGPTC) [Suspect]
     Active Substance: QUETIAPINE
     Indication: PSYCHOTIC DISORDER
     Dosage: 400 MG, DAILY
     Route: 065
  3. AMITRIPTYLINE [Suspect]
     Active Substance: AMITRIPTYLINE
     Indication: INSOMNIA
     Dosage: 10 MG, QHS
     Route: 065

REACTIONS (1)
  - Colitis ischaemic [Recovered/Resolved]
